FAERS Safety Report 15990872 (Version 5)
Quarter: 2019Q3

REPORT INFORMATION
  Report Type: Spontaneous
  Country: US (occurrence: US)
  Receive Date: 20190221
  Receipt Date: 20190807
  Transmission Date: 20191004
  Serious: Yes (Other)
  Sender: FDA-Public Use
  Company Number: US-RADIUS HEALTH INC.-2019US000576

PATIENT
  Age: 55 Year
  Sex: Female

DRUGS (1)
  1. TYMLOS [Suspect]
     Active Substance: ABALOPARATIDE
     Indication: OSTEOPOROSIS POSTMENOPAUSAL
     Dosage: 80 MCG DAILY
     Route: 058
     Dates: start: 20170920, end: 20190212

REACTIONS (5)
  - Carpal tunnel syndrome [Unknown]
  - Purpura [Unknown]
  - Plasma cell myeloma [Not Recovered/Not Resolved]
  - Amyloidosis [Not Recovered/Not Resolved]
  - Claudication of jaw muscles [Unknown]

NARRATIVE: CASE EVENT DATE: 201710
